FAERS Safety Report 9524478 (Version 2)
Quarter: 2013Q3

REPORT INFORMATION
  Report Type: Spontaneous
  Country: US (occurrence: US)
  Receive Date: 20130916
  Receipt Date: 20130916
  Transmission Date: 20140515
  Serious: Yes (Other)
  Sender: FDA-Public Use
  Company Number: US-PFIZER INC-2013132985

PATIENT
  Age: 17 Year
  Sex: Female

DRUGS (1)
  1. DILANTIN-125 [Suspect]
     Dosage: UNK
     Dates: start: 2005

REACTIONS (2)
  - Stevens-Johnson syndrome [Unknown]
  - Toxic epidermal necrolysis [Unknown]
